FAERS Safety Report 23543105 (Version 6)
Quarter: 2024Q4

REPORT INFORMATION
  Report Type: Spontaneous
  Country: US (occurrence: US)
  Receive Date: 20240220
  Receipt Date: 20241202
  Transmission Date: 20250115
  Serious: Yes (Death, Hospitalization, Other)
  Sender: BRISTOL-MYERS SQUIBB COMPANY
  Company Number: US-BRISTOL-MYERS SQUIBB COMPANY-2024-027062

PATIENT
  Age: 50 Year
  Sex: Male
  Weight: 95.5 kg

DRUGS (3)
  1. APIXABAN [Suspect]
     Active Substance: APIXABAN
     Indication: Product used for unknown indication
     Dates: start: 20230322
  2. PEMIGATINIB [Suspect]
     Active Substance: PEMIGATINIB
     Indication: Glioblastoma
     Route: 048
     Dates: start: 20230901, end: 20230914
  3. PEMIGATINIB [Suspect]
     Active Substance: PEMIGATINIB
     Route: 048
     Dates: start: 20231013, end: 20231026

REACTIONS (4)
  - Haemorrhage intracranial [Recovered/Resolved with Sequelae]
  - Hypokalaemia [Recovered/Resolved]
  - Hypomagnesaemia [Recovered/Resolved]
  - Malignant neoplasm progression [Fatal]

NARRATIVE: CASE EVENT DATE: 20231027
